FAERS Safety Report 13501610 (Version 1)
Quarter: 2017Q2

REPORT INFORMATION
  Report Type: Spontaneous
  Country: PL (occurrence: PL)
  Receive Date: 20170501
  Receipt Date: 20170501
  Transmission Date: 20170830
  Serious: Yes (Hospitalization)
  Sender: FDA-Public Use
  Company Number: PHHY2017PL059375

PATIENT
  Age: 40 Year
  Sex: Female
  Weight: 96 kg

DRUGS (1)
  1. AMOKSIKLAV [Suspect]
     Active Substance: AMOXICILLIN\CLAVULANATE POTASSIUM
     Indication: UPPER RESPIRATORY TRACT INFECTION
     Dosage: 1 G, UNK
     Route: 048
     Dates: end: 20170301

REACTIONS (5)
  - Skin lesion [Recovered/Resolved]
  - Rash erythematous [Recovered/Resolved]
  - Urticaria [Recovered/Resolved]
  - Dysphagia [Recovered/Resolved]
  - Angioedema [Recovered/Resolved]

NARRATIVE: CASE EVENT DATE: 20170227
